FAERS Safety Report 10742315 (Version 2)
Quarter: 2015Q1

REPORT INFORMATION
  Report Type: Spontaneous
  Country: FR (occurrence: FR)
  Receive Date: 20150127
  Receipt Date: 20150203
  Transmission Date: 20150721
  Serious: Yes (Hospitalization)
  Sender: FDA-Public Use
  Company Number: FR-009507513-1501FRA008494

PATIENT
  Age: 88 Year
  Sex: Female
  Weight: 63 kg

DRUGS (4)
  1. OFLOCET (OFLOXACIN) [Concomitant]
     Active Substance: OFLOXACIN
     Indication: RESPIRATORY DISORDER
     Dosage: UNK
     Dates: start: 201501, end: 201501
  2. ELIQUIS [Concomitant]
     Active Substance: APIXABAN
     Indication: ANTICOAGULANT THERAPY
     Dosage: 1 TABLET DAILY
     Dates: start: 20141229
  3. CELESTENE 4MG/1ML [Suspect]
     Active Substance: BETAMETHASONE
     Indication: RESPIRATORY DISORDER
     Dosage: STRENGTH: 4MG/ML, 1 AMPOULE, TWICE DAILY, TOTAL DAILY DOSE: 8 MG/ML
     Route: 055
     Dates: start: 201501, end: 201501
  4. DETURGYLONE [Concomitant]
     Active Substance: OXYMETAZOLINE HYDROCHLORIDE\PREDNISOLONE SODIUM PHOSPHATE
     Indication: RESPIRATORY DISORDER
     Dosage: UNK
     Dates: start: 201501, end: 201501

REACTIONS (10)
  - Sleep disorder [Unknown]
  - Blood pressure abnormal [Unknown]
  - Headache [Unknown]
  - Product container issue [Unknown]
  - Salivary gland disorder [Unknown]
  - Dysphagia [Unknown]
  - Malaise [Unknown]
  - Dyspnoea [Unknown]
  - Blood pressure increased [Unknown]
  - Intentional product use issue [Unknown]

NARRATIVE: CASE EVENT DATE: 201501
